FAERS Safety Report 8837559 (Version 1)
Quarter: 2012Q4

REPORT INFORMATION
  Report Type: Report from Study
  Country: CA (occurrence: CA)
  Receive Date: 20121012
  Receipt Date: 20121012
  Transmission Date: 20130627
  Serious: Yes (Other)
  Sender: FDA-Public Use
  Company Number: CA-JNJFOC-20120903131

PATIENT
  Age: 45 None
  Sex: Male
  Weight: 97 kg

DRUGS (3)
  1. REMICADE [Suspect]
     Indication: CROHN^S DISEASE
     Dosage: 8/52
     Route: 042
     Dates: start: 20120821
  2. AMOXICLAV [Concomitant]
     Route: 065
  3. FLAGYL [Concomitant]
     Route: 065

REACTIONS (6)
  - Joint stiffness [Recovered/Resolved]
  - Pruritus [Not Recovered/Not Resolved]
  - Urticaria [Not Recovered/Not Resolved]
  - Chest pain [Recovered/Resolved]
  - Weight increased [Not Recovered/Not Resolved]
  - Headache [Recovered/Resolved]
